FAERS Safety Report 5330578-5 (Version None)
Quarter: 2007Q2

REPORT INFORMATION
  Report Type: 
  Country: None (occurrence: None)
  Receive Date: 20070516
  Receipt Date: 20070510
  Transmission Date: 20071010
  Serious: Yes (Other)
  Sender: FDA-Public Use
  Company Number: SPV1-2006-01566

PATIENT
  Age: 35 Year
  Sex: Male

DRUGS (2)
  1. PENTASA [Suspect]
     Indication: COLITIS ULCERATIVE
     Dosage: 2 G DAILY, ORAL
     Route: 048
     Dates: start: 20040701, end: 20041001
  2. SULFASALAZINE [Concomitant]

REACTIONS (10)
  - ANAEMIA [None]
  - ASPARTATE AMINOTRANSFERASE INCREASED [None]
  - ASTHENIA [None]
  - CHEST X-RAY ABNORMAL [None]
  - COUGH [None]
  - GENERAL PHYSICAL CONDITION ABNORMAL [None]
  - HYPERGLYCAEMIA [None]
  - LUNG INFILTRATION [None]
  - NIGHT SWEATS [None]
  - PYREXIA [None]
